FAERS Safety Report 21392041 (Version 1)
Quarter: 2022Q3

REPORT INFORMATION
  Report Type: Spontaneous
  Country: US (occurrence: None)
  Receive Date: 20220928
  Receipt Date: 20220928
  Transmission Date: 20221026
  Serious: Yes (Life-Threatening, Hospitalization, Other)
  Sender: FDA-Public Use
  Company Number: None

PATIENT
  Age: 31 Year
  Sex: Female
  Weight: 57.15 kg

DRUGS (1)
  1. COMPAZINE [Suspect]
     Active Substance: PROCHLORPERAZINE MALEATE

REACTIONS (11)
  - Nephrolithiasis [None]
  - Treatment noncompliance [None]
  - Refusal of treatment by patient [None]
  - Patient elopement [None]
  - Psychotic disorder [None]
  - Feeling abnormal [None]
  - Formication [None]
  - Muscle twitching [None]
  - Suicidal ideation [None]
  - Insomnia [None]
  - Restlessness [None]

NARRATIVE: CASE EVENT DATE: 20211108
